FAERS Safety Report 23685206 (Version 2)
Quarter: 2024Q2

REPORT INFORMATION
  Report Type: Spontaneous
  Country: DE (occurrence: DE)
  Receive Date: 20240329
  Receipt Date: 20240402
  Transmission Date: 20240716
  Serious: Yes (Death, Other)
  Sender: FDA-Public Use
  Company Number: DE-BoehringerIngelheim-2024-BI-014392

PATIENT
  Age: 61 Year
  Sex: Male
  Weight: 82 kg

DRUGS (2)
  1. DOCETAXEL [Suspect]
     Active Substance: DOCETAXEL\DOCETAXEL ANHYDROUS
     Indication: Lung adenocarcinoma
     Dosage: UNK (FORMULATION: LIQUID)
     Route: 042
     Dates: start: 20210128
  2. NINTEDANIB [Suspect]
     Active Substance: NINTEDANIB
     Indication: Lung adenocarcinoma
     Dosage: 150 MILLIGRAM, TWO TIMES A DAY
     Route: 048
     Dates: start: 20210129

REACTIONS (1)
  - Death [Fatal]

NARRATIVE: CASE EVENT DATE: 20220407
